FAERS Safety Report 7724591-8 (Version None)
Quarter: 2011Q3

REPORT INFORMATION
  Report Type: 
  Country: None (occurrence: None)
  Receive Date: 20110901
  Receipt Date: 20110831
  Transmission Date: 20111222
  Serious: Yes (Other)
  Sender: FDA-Public Use
  Company Number: US-PFIZER INC-2011203769

PATIENT
  Sex: Female

DRUGS (1)
  1. CHANTIX [Suspect]
     Indication: SMOKING CESSATION THERAPY
     Dosage: 0.5 MG,DAILY
     Route: 048
     Dates: start: 20110801, end: 20110825

REACTIONS (2)
  - URTICARIA [None]
  - OROPHARYNGEAL PAIN [None]
